FAERS Safety Report 18630574 (Version 3)
Quarter: 2021Q3

REPORT INFORMATION
  Report Type: Spontaneous
  Country: JP (occurrence: JP)
  Receive Date: 20201218
  Receipt Date: 20210824
  Transmission Date: 20211014
  Serious: Yes (Hospitalization, Disabling, Other)
  Sender: FDA-Public Use
  Company Number: JP-AMGEN-JPNSP2020203153

PATIENT
  Age: 39 Year
  Sex: Female
  Weight: 50.8 kg

DRUGS (3)
  1. KYPROLIS [Suspect]
     Active Substance: CARFILZOMIB
     Dosage: 100 MG, QW
     Route: 041
     Dates: start: 20201128, end: 20201128
  2. KYPROLIS [Suspect]
     Active Substance: CARFILZOMIB
     Indication: PLASMA CELL MYELOMA
     Dosage: 28 MG, QW
     Route: 041
     Dates: start: 20201121, end: 20201121
  3. LENADEX [Concomitant]
     Active Substance: DEXAMETHASONE ACETATE
     Indication: PLASMA CELL MYELOMA
     Dosage: 40 MG, QW
     Route: 048
     Dates: start: 20201121, end: 20201128

REACTIONS (3)
  - Seizure [Recovered/Resolved]
  - Posterior reversible encephalopathy syndrome [Recovered/Resolved with Sequelae]
  - Hypertension [Recovered/Resolved]

NARRATIVE: CASE EVENT DATE: 20201202
